FAERS Safety Report 4886442-9 (Version None)
Quarter: 2006Q1

REPORT INFORMATION
  Report Type: 
  Country: None (occurrence: None)
  Receive Date: 20060120
  Receipt Date: 20051206
  Transmission Date: 20060701
  Serious: Yes (Hospitalization)
  Sender: FDA-Public Use
  Company Number: US-BRISTOL-MYERS SQUIBB COMPANY-13206370

PATIENT
  Age: 62 Year
  Sex: Female

DRUGS (3)
  1. ERBITUX [Suspect]
     Indication: NON-SMALL CELL LUNG CANCER
     Dosage: INITIAL LOADING DOSE ADMIN. ON 14-NOV-2005.  INTERRUPTED.
     Route: 042
     Dates: start: 20051128, end: 20051128
  2. CARBOPLATIN [Suspect]
     Indication: NON-SMALL CELL LUNG CANCER
     Route: 042
     Dates: start: 20051121, end: 20051121
  3. PACLITAXEL [Suspect]
     Indication: NON-SMALL CELL LUNG CANCER
     Dosage: INITIATED ON 21-NOV-2005.  INTERRUPTED.
     Route: 042
     Dates: start: 20051128, end: 20051128

REACTIONS (8)
  - BACTERAEMIA [None]
  - BACTERIAL SEPSIS [None]
  - HAEMOPHILUS INFECTION [None]
  - LOBAR PNEUMONIA [None]
  - NEUTROPENIA [None]
  - PNEUMONIA [None]
  - SHOULDER PAIN [None]
  - STAPHYLOCOCCAL INFECTION [None]
